FAERS Safety Report 8328855-9 (Version None)
Quarter: 2012Q2

REPORT INFORMATION
  Report Type: 
  Country: None (occurrence: None)
  Receive Date: 20120502
  Receipt Date: 20120424
  Transmission Date: 20120825
  Serious: Yes (Other)
  Sender: FDA-Public Use
  Company Number: JP-VERTEX PHARMACEUTICALS INC.-AE-2012-006071

PATIENT
  Age: 64 Year
  Sex: Female

DRUGS (12)
  1. EVAMYL [Concomitant]
     Route: 048
  2. LOCHOLEST [Concomitant]
     Route: 048
  3. TSUMURA JUZENTAIHOTO EXTRACT GRANULES FOR ETHICAL USE [Concomitant]
     Route: 048
  4. PEGINTERFERON ALFA-2B [Concomitant]
     Indication: HEPATITIS C
     Route: 051
     Dates: start: 20120130
  5. RIBAVIRIN [Concomitant]
     Route: 048
  6. OLMESARTAN MEDOXOMIL [Concomitant]
     Route: 048
  7. TELAVIC (TELAPREVIR) [Suspect]
     Indication: HEPATITIS C
     Route: 048
     Dates: start: 20120130, end: 20120423
  8. ZETIA [Concomitant]
     Route: 048
  9. EVISTA [Concomitant]
     Route: 048
  10. LOCHOLEST [Concomitant]
     Route: 048
     Dates: start: 20120316
  11. PEGINTERFERON ALFA-2B [Concomitant]
     Route: 051
  12. RIBAVIRIN [Concomitant]
     Indication: HEPATITIS C
     Route: 048
     Dates: start: 20120130

REACTIONS (2)
  - ANAEMIA [None]
  - PANCYTOPENIA [None]
